FAERS Safety Report 19502927 (Version 1)
Quarter: 2021Q3

REPORT INFORMATION
  Report Type: Spontaneous
  Country: CN (occurrence: CN)
  Receive Date: 20210707
  Receipt Date: 20210707
  Transmission Date: 20211014
  Serious: Yes (Other)
  Sender: FDA-Public Use
  Company Number: CN-PURDUE-USA-2021-0272432

PATIENT
  Age: 77 Year
  Sex: Female

DRUGS (2)
  1. MS CONTIN [Suspect]
     Active Substance: MORPHINE SULFATE
     Indication: CANCER PAIN
     Dosage: 20 MG, NOCTE
     Route: 048
     Dates: start: 20210515
  2. MS CONTIN [Suspect]
     Active Substance: MORPHINE SULFATE
     Dosage: 10 MG, Q12H
     Route: 048
     Dates: start: 20210512

REACTIONS (2)
  - Delirium [Recovered/Resolved]
  - Disorganised speech [Recovered/Resolved]

NARRATIVE: CASE EVENT DATE: 20210515
